FAERS Safety Report 7781185-6 (Version None)
Quarter: 2011Q3

REPORT INFORMATION
  Report Type: 
  Country: None (occurrence: None)
  Receive Date: 20110927
  Receipt Date: 20110912
  Transmission Date: 20111222
  Serious: Yes (Other)
  Sender: FDA-Public Use
  Company Number: JP-WATSON-2011-15256

PATIENT

DRUGS (2)
  1. CISPLATIN [Suspect]
     Indication: LIP AND/OR ORAL CAVITY CANCER
     Dosage: 60-70 MG/M2 DAY 1
  2. FLUOROURACIL [Suspect]
     Indication: LIP AND/OR ORAL CAVITY CANCER
     Dosage: 600-700 MG/M2, DAY 1 TO 5
     Route: 065

REACTIONS (5)
  - SEPSIS [None]
  - LEUKOPENIA [None]
  - DISSEMINATED INTRAVASCULAR COAGULATION [None]
  - NAUSEA [None]
  - MUCOSAL INFLAMMATION [None]
